FAERS Safety Report 21185755 (Version 1)
Quarter: 2022Q3

REPORT INFORMATION
  Report Type: Spontaneous
  Country: FR (occurrence: FR)
  Receive Date: 20220808
  Receipt Date: 20220808
  Transmission Date: 20221027
  Serious: Yes (Other)
  Sender: FDA-Public Use
  Company Number: None

PATIENT
  Age: 41 Year
  Sex: Male
  Weight: 74 kg

DRUGS (2)
  1. ALPRAZOLAM [Suspect]
     Active Substance: ALPRAZOLAM
     Indication: Product used for unknown indication
     Dosage: 0.05MG 3 TIMES A DAY
     Route: 065
     Dates: start: 2006, end: 20211118
  2. OXAZEPAM [Suspect]
     Active Substance: OXAZEPAM
     Indication: Product used for unknown indication
     Dosage: 50MG EVENING AND BEDTIME
     Route: 065
     Dates: start: 20211118

REACTIONS (2)
  - Drug dependence [Unknown]
  - Pharmaceutical nomadism [Unknown]

NARRATIVE: CASE EVENT DATE: 20060101
